FAERS Safety Report 21771045 (Version 1)
Quarter: 2022Q4

REPORT INFORMATION
  Report Type: Spontaneous
  Country: GB (occurrence: None)
  Receive Date: 20221223
  Receipt Date: 20221223
  Transmission Date: 20230113
  Serious: Yes (Other)
  Sender: FDA-Public Use
  Company Number: GB-ROCHE-3246196

PATIENT
  Age: 38 Year
  Sex: Male

DRUGS (1)
  1. OCRELIZUMAB [Suspect]
     Active Substance: OCRELIZUMAB
     Indication: Multiple sclerosis
     Route: 065

REACTIONS (2)
  - Lower respiratory tract infection [Unknown]
  - Dyspnoea [Unknown]
